FAERS Safety Report 23306549 (Version 1)
Quarter: 2023Q4

REPORT INFORMATION
  Report Type: Spontaneous
  Country: DE (occurrence: DE)
  Receive Date: 20231218
  Receipt Date: 20231218
  Transmission Date: 20240109
  Serious: Yes (Hospitalization)
  Sender: FDA-Public Use
  Company Number: DE-JNJFOC-20230827693

PATIENT
  Age: 72 Year
  Sex: Male

DRUGS (26)
  1. DEXAMETHASONE [Suspect]
     Active Substance: DEXAMETHASONE
     Indication: Plasma cell myeloma
     Dosage: 20MG
     Route: 042
     Dates: start: 20230123
  2. DEXAMETHASONE [Suspect]
     Active Substance: DEXAMETHASONE
     Dosage: 20MG
     Route: 042
     Dates: start: 20230109
  3. DEXAMETHASONE [Suspect]
     Active Substance: DEXAMETHASONE
     Dosage: 20MG
     Route: 042
     Dates: start: 20230110
  4. DEXAMETHASONE [Suspect]
     Active Substance: DEXAMETHASONE
     Dosage: 20MG
     Route: 042
     Dates: start: 20230116
  5. DEXAMETHASONE [Suspect]
     Active Substance: DEXAMETHASONE
     Dosage: 20MG
     Route: 042
     Dates: start: 20230206
  6. DEXAMETHASONE [Suspect]
     Active Substance: DEXAMETHASONE
     Dosage: 20MG
     Route: 042
     Dates: start: 20230213
  7. DEXAMETHASONE [Suspect]
     Active Substance: DEXAMETHASONE
     Dosage: 20MG
     Route: 042
     Dates: start: 20230220
  8. DEXAMETHASONE [Suspect]
     Active Substance: DEXAMETHASONE
     Dosage: 20MG
     Route: 042
     Dates: start: 20230227
  9. DARATUMUMAB [Suspect]
     Active Substance: DARATUMUMAB
     Indication: Plasma cell myeloma
     Dosage: 16MG/KG
     Route: 042
     Dates: start: 20230206
  10. DARATUMUMAB [Suspect]
     Active Substance: DARATUMUMAB
     Dosage: 16MG/KG
     Route: 042
     Dates: start: 20230116
  11. DARATUMUMAB [Suspect]
     Active Substance: DARATUMUMAB
     Dosage: 16MG/KG
     Route: 042
     Dates: start: 20230123
  12. DARATUMUMAB [Suspect]
     Active Substance: DARATUMUMAB
     Dosage: 16MG/KG
     Route: 042
     Dates: start: 20230130
  13. DARATUMUMAB [Suspect]
     Active Substance: DARATUMUMAB
     Dosage: 16MG/KG
     Route: 042
     Dates: start: 20230213
  14. DARATUMUMAB [Suspect]
     Active Substance: DARATUMUMAB
     Dosage: 16MG/KG
     Route: 042
     Dates: start: 20230220
  15. DARATUMUMAB [Suspect]
     Active Substance: DARATUMUMAB
     Dosage: 16MG/KG
     Route: 042
     Dates: start: 20230227
  16. DARATUMUMAB [Suspect]
     Active Substance: DARATUMUMAB
     Dosage: 8MG/KG
     Route: 042
     Dates: start: 20230109
  17. DARATUMUMAB [Suspect]
     Active Substance: DARATUMUMAB
     Dosage: 8MG/KG
     Route: 042
     Dates: start: 20230110
  18. LENALIDOMIDE [Suspect]
     Active Substance: LENALIDOMIDE
     Indication: Plasma cell myeloma
     Dosage: 10MG
     Route: 048
     Dates: start: 20230206, end: 20230226
  19. LENALIDOMIDE [Suspect]
     Active Substance: LENALIDOMIDE
     Dosage: 10MG
     Route: 048
     Dates: start: 20230109, end: 20230129
  20. ACYCLOVIR [Concomitant]
     Active Substance: ACYCLOVIR
     Indication: Prophylaxis
     Dosage: 200MG
     Route: 048
     Dates: start: 20230109
  21. CLEMASTINE [Concomitant]
     Active Substance: CLEMASTINE
     Indication: Prophylaxis
     Route: 048
     Dates: start: 20230203
  22. DIMETHINDENE [Concomitant]
     Active Substance: DIMETHINDENE
     Indication: Prophylaxis
     Dosage: 4MG
     Route: 042
     Dates: start: 20230109
  23. LACTULOSE [Concomitant]
     Active Substance: LACTULOSE
     Indication: Prophylaxis
     Dosage: 20DF QD
     Route: 048
     Dates: start: 20230201
  24. METAMIZOLE [Concomitant]
     Active Substance: METAMIZOLE
     Indication: Prophylaxis
     Dosage: 100.000DF
     Route: 048
     Dates: start: 20230124
  25. METHYLPREDNISOLONE [Concomitant]
     Active Substance: METHYLPREDNISOLONE
     Indication: Prophylaxis
     Dosage: 100MG QD
     Route: 062
     Dates: start: 20230123, end: 20230201
  26. ACETAMINOPHEN [Concomitant]
     Active Substance: ACETAMINOPHEN
     Indication: Prophylaxis
     Dosage: 500MG
     Route: 048
     Dates: start: 20230109

REACTIONS (1)
  - Pneumonia [Recovered/Resolved]

NARRATIVE: CASE EVENT DATE: 20230228
